FAERS Safety Report 8239697-7 (Version None)
Quarter: 2012Q1

REPORT INFORMATION
  Report Type: 
  Country: None (occurrence: None)
  Receive Date: 20120328
  Receipt Date: 20120323
  Transmission Date: 20120608
  Serious: Yes (Other)
  Sender: FDA-Public Use
  Company Number: US-JNJFOC-20110505379

PATIENT
  Sex: Female
  Weight: 58.97 kg

DRUGS (4)
  1. LIPITOR [Concomitant]
     Indication: PRODUCT USED FOR UNKNOWN INDICATION
     Route: 065
  2. ZYRTEC ALLERGY [Suspect]
     Indication: RHINORRHOEA
     Route: 048
     Dates: start: 20110401, end: 20110507
  3. ZYRTEC ALLERGY [Suspect]
     Route: 048
  4. BIRTH CONTROL PILLS [Concomitant]
     Indication: PRODUCT USED FOR UNKNOWN INDICATION
     Route: 065

REACTIONS (3)
  - DYSURIA [None]
  - URINARY RETENTION [None]
  - EXPIRED DRUG ADMINISTERED [None]
